FAERS Safety Report 25941053 (Version 6)
Quarter: 2025Q4

REPORT INFORMATION
  Report Type: Report from Study
  Country: US (occurrence: US)
  Receive Date: 20251020
  Receipt Date: 20251205
  Transmission Date: 20260117
  Serious: No
  Sender: MALLINCKRODT
  Company Number: US-MALLINCKRODT-MNK202506483

PATIENT
  Age: 10 Month
  Sex: Male
  Weight: 10 kg

DRUGS (2)
  1. CORTICOTROPIN [Suspect]
     Active Substance: CORTICOTROPIN
     Indication: Epilepsy
     Route: 030
     Dates: start: 20251014, end: 20251120
  2. CORTICOTROPIN [Suspect]
     Active Substance: CORTICOTROPIN
     Indication: Infantile spasms

REACTIONS (8)
  - Eczema [Unknown]
  - Feeling abnormal [Unknown]
  - Crying [Recovering/Resolving]
  - Insomnia [Recovering/Resolving]
  - Hunger [Recovering/Resolving]
  - Irritability [Recovering/Resolving]
  - Hypertension [Unknown]
  - Blood glucose increased [Unknown]

NARRATIVE: CASE EVENT DATE: 20250101
